FAERS Safety Report 16475604 (Version 1)
Quarter: 2019Q2

REPORT INFORMATION
  Report Type: Spontaneous
  Country: CN (occurrence: CN)
  Receive Date: 20190625
  Receipt Date: 20190625
  Transmission Date: 20190711
  Serious: Yes (Other)
  Sender: FDA-Public Use
  Company Number: CN-BAYER-2019-118753

PATIENT
  Age: 89 Year
  Sex: Male

DRUGS (1)
  1. AVELOX [Suspect]
     Active Substance: MOXIFLOXACIN HYDROCHLORIDE
     Indication: LUNG INFECTION
     Dosage: 0.4 G, QD
     Route: 048
     Dates: start: 20190517, end: 20190519

REACTIONS (2)
  - Restlessness [Recovered/Resolved]
  - Delirium [Recovered/Resolved]

NARRATIVE: CASE EVENT DATE: 20190519
